FAERS Safety Report 17774197 (Version 1)
Quarter: 2020Q2

REPORT INFORMATION
  Report Type: Spontaneous
  Country: US (occurrence: US)
  Receive Date: 20200513
  Receipt Date: 20200513
  Transmission Date: 20200714
  Serious: Yes (Hospitalization, Other)
  Sender: FDA-Public Use
  Company Number: US-009507513-2005USA002754

PATIENT
  Sex: Female
  Weight: 67.6 kg

DRUGS (10)
  1. MERCAPTOPURINE. [Suspect]
     Active Substance: MERCAPTOPURINE
     Dosage: 656.25 MILLIGRAM/SQ. METER, QW
     Dates: start: 20200225
  2. METHOTREXATE. [Suspect]
     Active Substance: METHOTREXATE
     Indication: B-CELL TYPE ACUTE LEUKAEMIA
     Dosage: 15 MILLIGRAM
     Route: 037
     Dates: start: 20200103
  3. METHOTREXATE. [Suspect]
     Active Substance: METHOTREXATE
     Dosage: 350 MILLIGRAM
     Dates: start: 20200110
  4. VINCRISTINE SULFATE. [Suspect]
     Active Substance: VINCRISTINE SULFATE
     Indication: B-CELL TYPE ACUTE LEUKAEMIA
     Dosage: 6 MILLIGRAM
     Dates: start: 20200103, end: 20200103
  5. MERCAPTOPURINE. [Suspect]
     Active Substance: MERCAPTOPURINE
     Indication: B-CELL TYPE ACUTE LEUKAEMIA
     Dosage: 525 MILLIGRAM/SQ. METER, QW
     Dates: start: 20200103, end: 20200224
  6. DECADRON [Suspect]
     Active Substance: DEXAMETHASONE
     Indication: B-CELL TYPE ACUTE LEUKAEMIA
     Dosage: 6 MILLIGRAM, BID ON DAYS 1-5, 29-33, 57-61
     Dates: start: 20200103, end: 20200229
  7. VINCRISTINE SULFATE. [Suspect]
     Active Substance: VINCRISTINE SULFATE
     Dosage: 6 MILLIGRAM
     Dates: start: 20200225, end: 20200225
  8. METHOTREXATE. [Suspect]
     Active Substance: METHOTREXATE
     Dosage: 350 MILLIGRAM
     Dates: start: 20200129, end: 20200310
  9. VINCRISTINE SULFATE. [Suspect]
     Active Substance: VINCRISTINE SULFATE
     Dosage: 6 MILLIGRAM
     Dates: start: 20200128, end: 20200128
  10. METHOTREXATE. [Suspect]
     Active Substance: METHOTREXATE
     Dosage: 15 MILLIGRAM
     Dates: start: 20200128

REACTIONS (3)
  - Deep vein thrombosis [Recovered/Resolved]
  - Menorrhagia [Unknown]
  - Metrorrhagia [Unknown]

NARRATIVE: CASE EVENT DATE: 2020
